FAERS Safety Report 23119451 (Version 1)
Quarter: 2023Q4

REPORT INFORMATION
  Report Type: Spontaneous
  Country: CA (occurrence: CA)
  Receive Date: 20231029
  Receipt Date: 20231029
  Transmission Date: 20240109
  Serious: Yes (Other)
  Sender: FDA-Public Use
  Company Number: CA-STRIDES ARCOLAB LIMITED-2023SP016025

PATIENT
  Sex: Female

DRUGS (8)
  1. AMANTADINE [Suspect]
     Active Substance: AMANTADINE
     Indication: Dystonia
     Dosage: 20 MILLIGRAM/DAY
     Route: 065
  2. AMANTADINE [Suspect]
     Active Substance: AMANTADINE
     Dosage: UNK, (TAPERED OFF)
     Route: 065
  3. LEVODOPA [Concomitant]
     Active Substance: LEVODOPA
     Indication: Dysarthria
     Dosage: UNK, (50/12.5 MG/DAY)
     Route: 065
  4. LEVODOPA [Concomitant]
     Active Substance: LEVODOPA
     Indication: Gait disturbance
  5. LEVODOPA [Concomitant]
     Active Substance: LEVODOPA
     Indication: Dystonia
  6. PERGOLIDE [Concomitant]
     Active Substance: PERGOLIDE
     Indication: Dysarthria
     Dosage: 0.5 MILLIGRAM/DAY
     Route: 065
  7. PERGOLIDE [Concomitant]
     Active Substance: PERGOLIDE
     Indication: Gait disturbance
  8. PERGOLIDE [Concomitant]
     Active Substance: PERGOLIDE
     Indication: Dystonia

REACTIONS (2)
  - Myoclonus [Recovered/Resolved]
  - Off label use [Unknown]
